FAERS Safety Report 9698733 (Version 1)
Quarter: 2013Q4

REPORT INFORMATION
  Report Type: Report from Study
  Country: AU (occurrence: AU)
  Receive Date: 20131120
  Receipt Date: 20131120
  Transmission Date: 20140711
  Serious: Yes (Other)
  Sender: FDA-Public Use
  Company Number: AU-SA-2013SA117576

PATIENT
  Age: 78 Year
  Sex: Male

DRUGS (10)
  1. RENAGEL [Suspect]
     Indication: PRODUCT USED FOR UNKNOWN INDICATION
     Route: 065
     Dates: start: 20131012
  2. MAREVAN [Concomitant]
  3. AMLODIPINE BESILATE [Concomitant]
  4. ATORVASTATIN [Concomitant]
  5. NEURONTIN [Concomitant]
  6. PANADOL OSTEO [Concomitant]
  7. ROCALTROL [Concomitant]
  8. SENSIPAR [Concomitant]
  9. PLAVIX [Concomitant]
  10. ARANESP [Concomitant]

REACTIONS (2)
  - Haematochezia [Unknown]
  - Constipation [Recovered/Resolved]
